FAERS Safety Report 21252713 (Version 1)
Quarter: 2022Q3

REPORT INFORMATION
  Report Type: Report from Study
  Country: BE (occurrence: BE)
  Receive Date: 20220825
  Receipt Date: 20220825
  Transmission Date: 20221026
  Serious: Yes (Other)
  Sender: FDA-Public Use
  Company Number: BE-TEVA-2022-BE-2066976

PATIENT

DRUGS (5)
  1. LEUCOVORIN [Suspect]
     Active Substance: LEUCOVORIN
     Indication: Gastrointestinal carcinoma
     Dosage: AS A PART OF FOLFIRI REGIMEN
     Route: 065
     Dates: start: 2020
  2. FLUOROURACIL [Suspect]
     Active Substance: FLUOROURACIL
     Indication: Gastrointestinal carcinoma
     Dosage: AS A PART OF FOLFIRI REGIMEN
     Route: 065
     Dates: start: 2020
  3. IRINOTECAN [Suspect]
     Active Substance: IRINOTECAN
     Indication: Gastrointestinal carcinoma
     Dosage: AS A PART OF FOLFIRI REGIMEN
     Route: 065
     Dates: start: 2020
  4. PANITUMUMAB [Suspect]
     Active Substance: PANITUMUMAB
     Indication: Gastrointestinal carcinoma
     Route: 065
     Dates: start: 2020
  5. CETUXIMAB [Suspect]
     Active Substance: CETUXIMAB
     Indication: Gastrointestinal carcinoma
     Route: 065
     Dates: start: 2020

REACTIONS (1)
  - Haematotoxicity [Unknown]

NARRATIVE: CASE EVENT DATE: 20200101
